FAERS Safety Report 9631052 (Version 1)
Quarter: 2013Q4

REPORT INFORMATION
  Report Type: Spontaneous
  Country: US (occurrence: None)
  Receive Date: 20131016
  Receipt Date: 20131016
  Transmission Date: 20140711
  Serious: No
  Sender: FDA-Public Use
  Company Number: None

PATIENT
  Age: 52 Year
  Sex: Female
  Weight: 71.6 kg

DRUGS (1)
  1. INTRON-A (INTERFERON ALFA-2B) [Suspect]
     Dosage: 5700000000 MU

REACTIONS (2)
  - Disease progression [None]
  - Gamma-glutamyltransferase increased [None]
